FAERS Safety Report 5476420-3 (Version None)
Quarter: 2007Q4

REPORT INFORMATION
  Report Type: 
  Country: None (occurrence: None)
  Receive Date: 20071003
  Receipt Date: 20070925
  Transmission Date: 20080405
  Serious: Yes (Hospitalization)
  Sender: FDA-Public Use
  Company Number: JP-MERCK-0708USA03785

PATIENT
  Age: 47 Year
  Sex: Female

DRUGS (3)
  1. SINGULAIR [Suspect]
     Indication: COUGH
     Route: 048
     Dates: start: 20070723, end: 20070729
  2. PULMICORT [Concomitant]
     Indication: TRACHEAL DISORDER
     Dates: start: 20070723, end: 20070725
  3. ZITHROMAX [Concomitant]
     Indication: PROPHYLAXIS
     Route: 048
     Dates: start: 20070723, end: 20070725

REACTIONS (3)
  - ANGIOEDEMA [None]
  - ERYTHEMA MULTIFORME [None]
  - PHARYNGEAL OEDEMA [None]
